FAERS Safety Report 6809054-6 (Version None)
Quarter: 2010Q2

REPORT INFORMATION
  Report Type: 
  Country: None (occurrence: None)
  Receive Date: 20100630
  Receipt Date: 20100623
  Transmission Date: 20101027
  Serious: Yes (Hospitalization)
  Sender: FDA-Public Use
  Company Number: US-BIOGENIDEC-2010BI021064

PATIENT
  Age: 58 Year
  Sex: Male
  Weight: 94 kg

DRUGS (2)
  1. AVONEX [Suspect]
     Indication: MULTIPLE SCLEROSIS
     Route: 030
     Dates: start: 19981001, end: 20030101
  2. AVONEX [Suspect]
     Route: 030
     Dates: start: 20030101

REACTIONS (9)
  - CLOSTRIDIAL INFECTION [None]
  - DIARRHOEA [None]
  - GASTROINTESTINAL DISORDER POSTOPERATIVE [None]
  - HERNIA [None]
  - NAUSEA [None]
  - POST PROCEDURAL HAEMORRHAGE [None]
  - RENAL CANCER [None]
  - RENAL DISORDER [None]
  - SEASONAL ALLERGY [None]
